FAERS Safety Report 17556637 (Version 1)
Quarter: 2020Q1

REPORT INFORMATION
  Report Type: Spontaneous
  Country: US (occurrence: US)
  Receive Date: 20200318
  Receipt Date: 20200318
  Transmission Date: 20200409
  Serious: Yes (Other)
  Sender: FDA-Public Use
  Company Number: None

PATIENT
  Sex: Female

DRUGS (1)
  1. TUCKS NOS [Suspect]
     Active Substance: GLYCERIN\LIDOCAINE OR MINERAL OIL\PRAMOXINE HYDROCHLORIDE\ZINC OXIDE OR PRAMOXINE HYDROCHLORIDE OR STARCH OR WITCH HAZEL

REACTIONS (1)
  - Drug ineffective [None]
